FAERS Safety Report 12834870 (Version 1)
Quarter: 2016Q4

REPORT INFORMATION
  Report Type: Report from Study
  Country: US (occurrence: US)
  Receive Date: 20161010
  Receipt Date: 20161010
  Transmission Date: 20170207
  Serious: Yes (Hospitalization)
  Sender: FDA-Public Use
  Company Number: US-BEH-2016073913

PATIENT
  Age: 59 Year
  Sex: Female
  Weight: 47.62 kg

DRUGS (1)
  1. ZEMAIRA [Suspect]
     Active Substance: .ALPHA.1-PROTEINASE INHIBITOR HUMAN
     Indication: ALPHA-1 ANTI-TRYPSIN DEFICIENCY
     Dosage: UNK, WEEKLY
     Route: 042

REACTIONS (10)
  - Blood phosphorus decreased [Unknown]
  - Protein total decreased [Unknown]
  - Blood electrolytes abnormal [Unknown]
  - Proteinuria [Unknown]
  - Blood magnesium decreased [Unknown]
  - Nausea [Unknown]
  - Vomiting [Unknown]
  - Blood potassium decreased [Unknown]
  - Blood sodium increased [Unknown]
  - Retching [Unknown]

NARRATIVE: CASE EVENT DATE: 20160912
